FAERS Safety Report 5752385-1 (Version None)
Quarter: 2008Q2

REPORT INFORMATION
  Report Type: 
  Country: None (occurrence: None)
  Receive Date: 20080529
  Receipt Date: 20080520
  Transmission Date: 20081010
  Serious: Yes (Death, Hospitalization)
  Sender: FDA-Public Use
  Company Number: A0723936A

PATIENT
  Age: 70 Year
  Sex: Female
  Weight: 75.4 kg

DRUGS (1)
  1. LAPATINIB [Suspect]
     Indication: BREAST CANCER
     Dosage: 1500MG PER DAY
     Route: 048
     Dates: start: 20070830

REACTIONS (10)
  - ACUTE RESPIRATORY DISTRESS SYNDROME [None]
  - BRONCHOPNEUMONIA [None]
  - DEHYDRATION [None]
  - DIARRHOEA [None]
  - GENERAL PHYSICAL HEALTH DETERIORATION [None]
  - LUNG ABSCESS [None]
  - PERICARDIAL EFFUSION [None]
  - PLEURAL EFFUSION [None]
  - RESPIRATORY FAILURE [None]
  - SEPSIS [None]
